FAERS Safety Report 10232355 (Version 2)
Quarter: 2014Q2

REPORT INFORMATION
  Report Type: Spontaneous
  Country: ZA (occurrence: ZA)
  Receive Date: 20140612
  Receipt Date: 20140612
  Transmission Date: 20141212
  Serious: Yes (Other)
  Sender: FDA-Public Use
  Company Number: PHHY2014ZA067817

PATIENT
  Age: 80 Year
  Sex: Male
  Weight: 70 kg

DRUGS (6)
  1. ACLASTA [Suspect]
     Indication: OSTEOPOROSIS
     Dosage: 5 MG, ANNUALLY
     Route: 042
     Dates: start: 20140527
  2. PREXAN                             /07418601/ [Concomitant]
     Indication: HYPERTENSION
     Dosage: UNK UKN, QD
     Route: 048
     Dates: start: 20060310
  3. ECOTRIN 650 [Concomitant]
     Indication: PERIPHERAL VASCULAR DISORDER
     Dosage: UNK UKN, DAILY
     Route: 048
     Dates: start: 20060322
  4. ECOTRIN 650 [Concomitant]
     Indication: CEREBROVASCULAR ACCIDENT
  5. CIPLAVASC [Concomitant]
     Indication: HYPERTENSION
     Dosage: UNK UKN, DAILY
     Route: 048
     Dates: start: 20130913
  6. SIMVASTATIN [Concomitant]
     Indication: HYPERLIPIDAEMIA
     Dosage: UNK UKN, DAILY
     Route: 048
     Dates: start: 20060322

REACTIONS (3)
  - Dermatitis exfoliative [Recovering/Resolving]
  - Dermatitis [Unknown]
  - Rash [Unknown]
